FAERS Safety Report 9693742 (Version 1)
Quarter: 2013Q4

REPORT INFORMATION
  Report Type: Spontaneous
  Country: AU (occurrence: AU)
  Receive Date: 20131118
  Receipt Date: 20131118
  Transmission Date: 20140711
  Serious: Yes (Congenital Anomaly, Other)
  Sender: FDA-Public Use
  Company Number: AU-ABBVIE-13P-008-1158251-00

PATIENT
  Sex: 0

DRUGS (1)
  1. EPILIM [Suspect]
     Indication: PRODUCT USED FOR UNKNOWN INDICATION

REACTIONS (5)
  - Growth retardation [Unknown]
  - Convulsion [Unknown]
  - Dementia [Unknown]
  - Hypospadias [Unknown]
  - Foetal exposure during pregnancy [Unknown]
